FAERS Safety Report 8828910 (Version 2)
Quarter: 2012Q4

REPORT INFORMATION
  Report Type: Report from Study
  Country: CA (occurrence: CA)
  Receive Date: 20121008
  Receipt Date: 20121009
  Transmission Date: 20130627
  Serious: Yes (Hospitalization)
  Sender: FDA-Public Use
  Company Number: CA-ROCHE-1131760

PATIENT
  Sex: Male

DRUGS (5)
  1. ZELBORAF [Suspect]
     Indication: METASTATIC MALIGNANT MELANOMA
     Route: 042
     Dates: start: 201208, end: 201209
  2. PANTOLOC [Concomitant]
  3. COMBIGAN [Concomitant]
     Indication: GLAUCOMA
  4. TYLENOL #3 (CANADA) [Concomitant]
     Indication: PAIN
  5. DEXAMETHASONE [Concomitant]

REACTIONS (3)
  - Dysphagia [Unknown]
  - Condition aggravated [Not Recovered/Not Resolved]
  - Disease progression [Not Recovered/Not Resolved]
